FAERS Safety Report 23108395 (Version 1)
Quarter: 2023Q4

REPORT INFORMATION
  Report Type: Spontaneous
  Country: PT (occurrence: PT)
  Receive Date: 20231026
  Receipt Date: 20231026
  Transmission Date: 20240109
  Serious: Yes (Other)
  Sender: FDA-Public Use
  Company Number: None

PATIENT
  Age: 55 Year
  Sex: Female

DRUGS (6)
  1. CAPECITABINE [Suspect]
     Active Substance: CAPECITABINE
     Indication: Cholangiocarcinoma
     Dosage: 2600MG/TOTAL DIARIO
     Dates: start: 20230320
  2. Salofalk [Concomitant]
  3. RIVOTRIL [Concomitant]
     Active Substance: CLONAZEPAM
  4. SULFASALAZINE [Concomitant]
     Active Substance: SULFASALAZINE
  5. SUCRALFATE [Concomitant]
     Active Substance: SUCRALFATE
  6. MIRTAZAPINE [Concomitant]
     Active Substance: MIRTAZAPINE

REACTIONS (1)
  - Dermatitis bullous [Not Recovered/Not Resolved]

NARRATIVE: CASE EVENT DATE: 20230915
